FAERS Safety Report 6546672-7 (Version None)
Quarter: 2010Q1

REPORT INFORMATION
  Report Type: 
  Country: None (occurrence: None)
  Receive Date: 20100122
  Receipt Date: 20100114
  Transmission Date: 20100710
  Serious: Yes (Other)
  Sender: FDA-Public Use
  Company Number: FR-ASTRAZENECA-2010SE01644

PATIENT
  Age: 54 Day
  Sex: Female
  Weight: 3.6 kg

DRUGS (3)
  1. PROPOFOL [Suspect]
     Indication: INDUCTION AND MAINTENANCE OF ANAESTHESIA
  2. SUFENTANYL [Concomitant]
     Indication: INDUCTION AND MAINTENANCE OF ANAESTHESIA
  3. SEVOFLURANE [Concomitant]
     Indication: INDUCTION AND MAINTENANCE OF ANAESTHESIA
     Dosage: 3.1-8%

REACTIONS (4)
  - HEAD CIRCUMFERENCE ABNORMAL [None]
  - MENTAL RETARDATION [None]
  - PARTIAL SEIZURES WITH SECONDARY GENERALISATION [None]
  - PYRAMIDAL TRACT SYNDROME [None]
